FAERS Safety Report 7832392-5 (Version None)
Quarter: 2011Q4

REPORT INFORMATION
  Report Type: 
  Country: None (occurrence: None)
  Receive Date: 20111022
  Receipt Date: 20101028
  Transmission Date: 20120403
  Serious: No
  Sender: FDA-Public Use
  Company Number: US-BAYER-201039040NA

PATIENT
  Age: 63 Year
  Sex: Female

DRUGS (5)
  1. TESTOSTERONE [Concomitant]
  2. PREMARIN [Concomitant]
  3. CIPROFLOXACIN [Suspect]
     Indication: SMALL INTESTINAL BACTERIAL OVERGROWTH
     Dosage: 500 MG, BID
     Route: 048
     Dates: start: 20101021
  4. PROVERA [Concomitant]
  5. METHOTREXATE [Concomitant]

REACTIONS (1)
  - ABDOMINAL PAIN LOWER [None]
